FAERS Safety Report 16482413 (Version 1)
Quarter: 2019Q2

REPORT INFORMATION
  Report Type: Spontaneous
  Country: GR (occurrence: GR)
  Receive Date: 20190627
  Receipt Date: 20190627
  Transmission Date: 20190711
  Serious: Yes (Hospitalization)
  Sender: FDA-Public Use
  Company Number: GR-BIOGEN-2019BI00755465

PATIENT
  Age: 55 Year
  Sex: Female

DRUGS (1)
  1. TYSABRI [Suspect]
     Active Substance: NATALIZUMAB
     Indication: OCCUPATIONAL EXPOSURE TO PRODUCT
     Route: 031

REACTIONS (2)
  - Retinal detachment [Not Recovered/Not Resolved]
  - Occupational exposure to product [Recovered/Resolved]

NARRATIVE: CASE EVENT DATE: 20190205
